FAERS Safety Report 18607153 (Version 5)
Quarter: 2021Q2

REPORT INFORMATION
  Report Type: Spontaneous
  Country: US (occurrence: US)
  Receive Date: 20201211
  Receipt Date: 20210527
  Transmission Date: 20210717
  Serious: Yes (Congenital Anomaly, Other)
  Sender: FDA-Public Use
  Company Number: NVSC2020US325448

PATIENT
  Sex: Male

DRUGS (2)
  1. ZOFRAN [Suspect]
     Active Substance: ONDANSETRON HYDROCHLORIDE
     Indication: FOETAL EXPOSURE DURING PREGNANCY
     Dosage: MOTHER DOSE: 04 MG, Q6H
     Route: 064
  2. ONDANSETRON [Suspect]
     Active Substance: ONDANSETRON
     Indication: FOETAL EXPOSURE DURING PREGNANCY
     Dosage: MOTHER DOSE: 08 MG, Q6H
     Route: 064

REACTIONS (35)
  - Conductive deafness [Unknown]
  - Tonsillar hypertrophy [Unknown]
  - Ear infection [Unknown]
  - Joint swelling [Unknown]
  - Nose deformity [Unknown]
  - Otitis media chronic [Unknown]
  - Injury [Unknown]
  - Otorrhoea [Unknown]
  - Upper respiratory tract infection [Unknown]
  - Insomnia [Unknown]
  - Nasal congestion [Unknown]
  - Cardiac murmur [Unknown]
  - Tympanic membrane perforation [Unknown]
  - Asthma [Unknown]
  - Wheezing [Unknown]
  - Otitis media acute [Unknown]
  - Oropharyngeal pain [Unknown]
  - Adenoidal hypertrophy [Unknown]
  - Pyrexia [Unknown]
  - Rash erythematous [Unknown]
  - Attention deficit hyperactivity disorder [Unknown]
  - Irritability [Unknown]
  - Erythema [Unknown]
  - Cardiac murmur functional [Unknown]
  - Obstructive airways disorder [Unknown]
  - Eustachian tube dysfunction [Unknown]
  - Gastrooesophageal reflux disease [Unknown]
  - Rhinorrhoea [Unknown]
  - Pruritus [Unknown]
  - Cleft lip and palate [Unknown]
  - Ankyloglossia congenital [Unknown]
  - Foetal exposure during pregnancy [Unknown]
  - Rhinitis [Unknown]
  - Cough [Unknown]
  - Ear pain [Unknown]
